FAERS Safety Report 8269710-2 (Version None)
Quarter: 2012Q2

REPORT INFORMATION
  Report Type: 
  Country: None (occurrence: None)
  Receive Date: 20120406
  Receipt Date: 20120328
  Transmission Date: 20120825
  Serious: Yes (Other)
  Sender: FDA-Public Use
  Company Number: TPA2012A01758

PATIENT
  Age: 69 Year
  Sex: Female
  Weight: 73.4827 kg

DRUGS (7)
  1. NEURONTIN [Concomitant]
  2. PAXIL [Concomitant]
  3. NORVASC [Concomitant]
  4. LORAZEPAM [Concomitant]
  5. CLONOPIN [Concomitant]
  6. EDARBYCLOR [Suspect]
     Indication: HYPERTENSION
     Dosage: 40/12.5 MG
     Dates: start: 20120312, end: 20120320
  7. FUROSEMIDE [Concomitant]

REACTIONS (1)
  - DEAFNESS BILATERAL [None]
